FAERS Safety Report 9366965 (Version 2)
Quarter: 2013Q3

REPORT INFORMATION
  Report Type: Spontaneous
  Country: FR (occurrence: FR)
  Receive Date: 20130625
  Receipt Date: 20130828
  Transmission Date: 20140515
  Serious: Yes (Life-Threatening)
  Sender: FDA-Public Use
  Company Number: FR-GLAXOSMITHKLINE-B0900462A

PATIENT
  Age: 77 Year
  Sex: Female

DRUGS (15)
  1. ZELITREX [Suspect]
     Indication: HERPES ZOSTER
     Route: 048
     Dates: start: 20121129, end: 20121206
  2. CLAMOXYL [Suspect]
     Indication: URINARY TRACT INFECTION
     Route: 048
     Dates: start: 20121124, end: 20121203
  3. ROCEPHINE [Suspect]
     Indication: URINARY TRACT INFECTION
     Route: 042
     Dates: start: 20121203, end: 20121211
  4. ZYLORIC [Suspect]
     Indication: HYPERURICAEMIA
     Dosage: 100MG ALTERNATE DAYS
     Route: 048
     Dates: start: 20121120
  5. BENDAMUSTINE [Suspect]
     Indication: PLASMA CELL MYELOMA
     Dosage: 210MG CYCLIC
     Route: 065
     Dates: start: 20121111
  6. VELCADE [Suspect]
     Indication: PLASMA CELL MYELOMA
     Route: 065
     Dates: start: 20121105
  7. CARDENSIEL [Concomitant]
     Dosage: 1.25MG PER DAY
  8. DOLIPRANE [Concomitant]
  9. INEXIUM [Concomitant]
     Dosage: 20MG PER DAY
  10. KARDEGIC [Concomitant]
     Dosage: 75MG PER DAY
  11. LOXEN [Concomitant]
     Dosage: 20MG TWICE PER DAY
  12. TAHOR [Concomitant]
     Dosage: 10MG PER DAY
  13. LYRICA [Concomitant]
     Dosage: 25MG PER DAY
  14. BORTEZOMIB [Concomitant]
     Indication: PLASMA CELL MYELOMA
     Dosage: 1.3MG CYCLIC
  15. DEXAMETHASONE [Concomitant]
     Dosage: 40MG CYCLIC

REACTIONS (1)
  - Haemolytic anaemia [Not Recovered/Not Resolved]
